FAERS Safety Report 8357034-4 (Version None)
Quarter: 2012Q2

REPORT INFORMATION
  Report Type: 
  Country: None (occurrence: None)
  Receive Date: 20120514
  Receipt Date: 20120507
  Transmission Date: 20120825
  Serious: No
  Sender: FDA-Public Use
  Company Number: US-ROXANE LABORATORIES, INC.-2012-RO-00861RO

PATIENT

DRUGS (1)
  1. ROPINIROLE [Suspect]
     Indication: PARKINSONIAN REST TREMOR
     Dosage: 12 MG
     Dates: start: 20120104

REACTIONS (1)
  - DRUG INEFFECTIVE [None]
